FAERS Safety Report 21514695 (Version 1)
Quarter: 2022Q4

REPORT INFORMATION
  Report Type: Spontaneous
  Country: CN (occurrence: CN)
  Receive Date: 20221027
  Receipt Date: 20221027
  Transmission Date: 20230112
  Serious: Yes (Other)
  Sender: FDA-Public Use
  Company Number: CN-PFIZER INC-PV202200088131

PATIENT
  Age: 65 Year
  Sex: Male
  Weight: 54 kg

DRUGS (4)
  1. METHOTREXATE SODIUM [Suspect]
     Active Substance: METHOTREXATE SODIUM
     Indication: Mantle cell lymphoma
     Dosage: 0.3 G, SINGLE
     Route: 041
     Dates: start: 20221007, end: 20221007
  2. METHOTREXATE SODIUM [Suspect]
     Active Substance: METHOTREXATE SODIUM
     Dosage: 1.2 G, SINGLE
     Route: 041
     Dates: start: 20221007, end: 20221008
  3. SODIUM CHLORIDE [Concomitant]
     Active Substance: SODIUM CHLORIDE
     Indication: Mantle cell lymphoma
     Dosage: 500 ML, SINGLE
     Route: 041
     Dates: start: 20221007, end: 20221007
  4. SODIUM CHLORIDE [Concomitant]
     Active Substance: SODIUM CHLORIDE
     Dosage: 1000 ML, SINGLE
     Route: 041
     Dates: start: 20221007, end: 20221008

REACTIONS (3)
  - Hyperpyrexia [Recovering/Resolving]
  - Tachypnoea [Recovering/Resolving]
  - Pyrexia [Recovered/Resolved]

NARRATIVE: CASE EVENT DATE: 20221007
